FAERS Safety Report 6328593-8 (Version None)
Quarter: 2009Q3

REPORT INFORMATION
  Report Type: 
  Country: None (occurrence: None)
  Receive Date: 20090824
  Receipt Date: 20090824
  Transmission Date: 20100115
  Serious: Yes (Death)
  Sender: FDA-Public Use
  Company Number: None

PATIENT
  Age: 39 Year
  Sex: Male
  Weight: 65.2 kg

DRUGS (4)
  1. TRUVADA [Suspect]
     Indication: HIV INFECTION
     Dosage: 500 MG QD ORAL
     Route: 048
     Dates: start: 20090526, end: 20090730
  2. EFAVIRENZ [Suspect]
     Indication: HIV INFECTION
     Dosage: 600 MG QD ORAL
     Route: 048
     Dates: start: 20090526, end: 20090730
  3. RIFAFOUR [Concomitant]
  4. STREPTOMYCINE [Concomitant]

REACTIONS (8)
  - ACID FAST BACILLI INFECTION [None]
  - ARTHRALGIA [None]
  - BLOOD ALBUMIN DECREASED [None]
  - CD4 LYMPHOCYTES DECREASED [None]
  - HEARING IMPAIRED [None]
  - MALAISE [None]
  - NIGHT SWEATS [None]
  - RED BLOOD CELL COUNT DECREASED [None]
